FAERS Safety Report 8825633 (Version 2)
Quarter: 2013Q1

REPORT INFORMATION
  Report Type: Spontaneous
  Country: US (occurrence: US)
  Receive Date: 20121004
  Receipt Date: 20130208
  Transmission Date: 20140127
  Serious: Yes (Life-Threatening, Hospitalization)
  Sender: FDA-Public Use
  Company Number: US-009507513-1209USA010972

PATIENT
  Age: 52 None
  Sex: Female
  Weight: 103.4 kg

DRUGS (16)
  1. VICTRELIS [Suspect]
     Dosage: 800 MG, TID
     Route: 048
     Dates: start: 20120801, end: 201209
  2. PEGASYS [Suspect]
     Dosage: UNK
     Dates: start: 20120705, end: 201209
  3. RIBAPAK [Suspect]
     Dosage: 1 DF, BID
     Dates: start: 20120705, end: 201209
  4. LYRICA [Concomitant]
  5. HYDROXYCHLOROQUINE SULFATE [Concomitant]
  6. PROZAC [Concomitant]
  7. CINNAMON [Concomitant]
  8. PROBIOTICA [Concomitant]
  9. MILK THISTLE [Concomitant]
  10. OMEGA-3 MARINE TRIGLYCERIDES [Concomitant]
  11. BIOTIN [Concomitant]
  12. FLEXERIL [Concomitant]
  13. LISINOPRIL [Concomitant]
  14. XANAX [Concomitant]
  15. ASCORBIC ACID [Concomitant]
  16. VITAMIN E [Concomitant]
     Dosage: UNK

REACTIONS (5)
  - Pneumonia [Unknown]
  - Oral fungal infection [Unknown]
  - Fatigue [Unknown]
  - Arthralgia [Unknown]
  - Pancytopenia [Unknown]
